FAERS Safety Report 13480995 (Version 4)
Quarter: 2017Q4

REPORT INFORMATION
  Report Type: Spontaneous
  Country: US (occurrence: US)
  Receive Date: 20170425
  Receipt Date: 20171117
  Transmission Date: 20180320
  Serious: No
  Sender: FDA-Public Use
  Company Number: US-BAUSCH-BL-2016-028153

PATIENT
  Age: 58 Year
  Sex: Female

DRUGS (4)
  1. XENAZINE [Suspect]
     Active Substance: TETRABENAZINE
     Indication: TARDIVE DYSKINESIA
     Route: 048
     Dates: start: 201609
  2. XENAZINE [Suspect]
     Active Substance: TETRABENAZINE
     Indication: CHOREA
     Route: 048
  3. XENAZINE [Suspect]
     Active Substance: TETRABENAZINE
     Dosage: TWO 12.5 MG TABLET ORALLY IN THE MORNING, ONE 12.5 MG TABLET AT NOON, AND TWO 12.5 MG TABLETS IN THE
     Route: 048
     Dates: start: 20170111
  4. XENAZINE [Suspect]
     Active Substance: TETRABENAZINE
     Route: 048
     Dates: start: 20170306

REACTIONS (5)
  - Tongue movement disturbance [Recovered/Resolved]
  - Incorrect dose administered [Unknown]
  - Dyskinesia [Unknown]
  - Condition aggravated [Unknown]
  - Drug dose omission [Unknown]

NARRATIVE: CASE EVENT DATE: 2016
